FAERS Safety Report 8060824-9 (Version None)
Quarter: 2012Q1

REPORT INFORMATION
  Report Type: 
  Country: None (occurrence: None)
  Receive Date: 20120120
  Receipt Date: 20110203
  Transmission Date: 20120608
  Serious: No
  Sender: FDA-Public Use
  Company Number: US-ALLERGAN-1101573US

PATIENT
  Age: 81 Year
  Sex: Male

DRUGS (5)
  1. RESTASIS [Suspect]
     Indication: DRY EYE
     Dosage: 2 GTT, BID
     Route: 047
     Dates: start: 20060101
  2. REFRESH TEARS [Concomitant]
     Indication: DRY EYE
  3. TRAVATAN [Concomitant]
     Indication: GLAUCOMA
  4. REFRESH LIQUIGEL OPHTHALMIC [Concomitant]
     Indication: DRY EYE
     Dosage: UNK
     Dates: start: 20101101
  5. BACITRACIN OPHTHALMIC [Concomitant]
     Indication: BLEPHARITIS
     Dosage: UNK

REACTIONS (2)
  - EYELID PTOSIS [None]
  - VISION BLURRED [None]
